FAERS Safety Report 22326010 (Version 2)
Quarter: 2023Q2

REPORT INFORMATION
  Report Type: Report from Study
  Country: US (occurrence: US)
  Receive Date: 20230516
  Receipt Date: 20230523
  Transmission Date: 20230721
  Serious: Yes (Hospitalization)
  Sender: FDA-Public Use
  Company Number: US-PFIZER INC-US-GBT-020457

PATIENT
  Age: 35 Year
  Sex: Male

DRUGS (1)
  1. OXBRYTA [Suspect]
     Active Substance: VOXELOTOR
     Dosage: 1000 MG, 1X/DAY

REACTIONS (2)
  - Sickle cell anaemia with crisis [Unknown]
  - Off label use [Unknown]

NARRATIVE: CASE EVENT DATE: 20230116
